FAERS Safety Report 6349815-3 (Version None)
Quarter: 2009Q3

REPORT INFORMATION
  Report Type: 
  Country: None (occurrence: None)
  Receive Date: 20090911
  Receipt Date: 20090901
  Transmission Date: 20100115
  Serious: Yes (Other)
  Sender: FDA-Public Use
  Company Number: JP-MERCK-0908USA03732

PATIENT
  Age: 64 Year
  Sex: Female

DRUGS (10)
  1. ZETIA [Suspect]
     Indication: HYPERTRIGLYCERIDAEMIA
     Route: 048
     Dates: start: 20090710
  2. WARFARIN POTASSIUM [Suspect]
     Indication: ATRIAL FIBRILLATION
     Route: 048
     Dates: start: 20060901, end: 20090709
  3. WARFARIN POTASSIUM [Suspect]
     Route: 048
     Dates: start: 20090710, end: 20090813
  4. WARFARIN POTASSIUM [Suspect]
     Route: 048
     Dates: start: 20090818
  5. FUROSEMIDE [Concomitant]
     Route: 065
     Dates: start: 20060901
  6. METILDIGOXIN [Concomitant]
     Route: 065
     Dates: start: 20060901
  7. CARVEDILOL [Concomitant]
     Route: 065
     Dates: start: 20060901
  8. SPIRONOLACTONE [Concomitant]
     Route: 065
     Dates: start: 20060901
  9. ALLOPURINOL [Concomitant]
     Route: 065
     Dates: start: 20060901
  10. FENOFIBRATE [Concomitant]
     Route: 065
     Dates: start: 20060901

REACTIONS (2)
  - DRUG INTERACTION [None]
  - HYPOPROTHROMBINAEMIA [None]
